FAERS Safety Report 6804748-0 (Version None)
Quarter: 2010Q2

REPORT INFORMATION
  Report Type: 
  Country: None (occurrence: None)
  Receive Date: 20100628
  Receipt Date: 20070522
  Transmission Date: 20101027
  Serious: No
  Sender: FDA-Public Use
  Company Number: US-PFIZER INC-2007040442

PATIENT
  Sex: Female

DRUGS (2)
  1. GEODON [Suspect]
     Dosage: 20MG AM, 90MG PM, 110MG TDD
     Route: 048
     Dates: start: 20070301
  2. MULTI-VITAMINS [Concomitant]

REACTIONS (15)
  - ABASIA [None]
  - ASTHENIA [None]
  - CHEST PAIN [None]
  - COSTOCHONDRITIS [None]
  - COUGH [None]
  - EAR PAIN [None]
  - EXERCISE TOLERANCE DECREASED [None]
  - HEADACHE [None]
  - MYALGIA [None]
  - NAUSEA [None]
  - NEURALGIA [None]
  - PRODUCTIVE COUGH [None]
  - SLEEP DISORDER [None]
  - SYNCOPE [None]
  - VIRAL INFECTION [None]
